FAERS Safety Report 15291363 (Version 1)
Quarter: 2018Q3

REPORT INFORMATION
  Report Type: Spontaneous
  Country: US (occurrence: US)
  Receive Date: 20180805
  Receipt Date: 20180805
  Transmission Date: 20181010
  Serious: Yes (Disabling)
  Sender: FDA-Public Use
  Company Number: None

PATIENT
  Age: 34 Year
  Sex: Male
  Weight: 74.25 kg

DRUGS (5)
  1. DEPO TESTOSTERONE [Concomitant]
     Active Substance: TESTOSTERONE
  2. LETROZOLE. [Concomitant]
     Active Substance: LETROZOLE
  3. HERBAL LIFE FORMULA ONE LEAN PROTEIN [Concomitant]
  4. GABAPENTIN. [Concomitant]
     Active Substance: GABAPENTIN
  5. LAMICTAL [Suspect]
     Active Substance: LAMOTRIGINE
     Indication: POST-TRAUMATIC STRESS DISORDER
     Dosage: ?          QUANTITY:3 TABLET(S);?
     Route: 048
     Dates: start: 20180726

REACTIONS (2)
  - Confusional state [None]
  - Anger [None]

NARRATIVE: CASE EVENT DATE: 20180803
